FAERS Safety Report 5779180-1 (Version None)
Quarter: 2008Q2

REPORT INFORMATION
  Report Type: 
  Country: None (occurrence: None)
  Receive Date: 20080619
  Receipt Date: 20080609
  Transmission Date: 20081010
  Serious: Yes (Other)
  Sender: FDA-Public Use
  Company Number: US-BAYER-200825348NA

PATIENT

DRUGS (1)
  1. MAGNEVIST [Suspect]
     Indication: UNEVALUABLE EVENT
     Dates: start: 20071201

REACTIONS (1)
  - HYPERSENSITIVITY [None]
